FAERS Safety Report 8262708-X (Version None)
Quarter: 2012Q2

REPORT INFORMATION
  Report Type: 
  Country: None (occurrence: None)
  Receive Date: 20120405
  Receipt Date: 20120321
  Transmission Date: 20120825
  Serious: Yes (Other)
  Sender: FDA-Public Use
  Company Number: PHEH2006US02616

PATIENT
  Sex: Female

DRUGS (10)
  1. LOMOTIL [Suspect]
     Indication: DIARRHOEA
     Dosage: UNK
  2. SANDOSTATIN [Suspect]
     Dosage: 50 MG, BID
  3. SANDOSTATIN [Suspect]
     Dosage: 50 MG, TID
  4. IMODIUM [Suspect]
     Indication: DIARRHOEA
     Dosage: UNK
  5. GENGRAF [Concomitant]
     Dosage: 100 MG, BID
  6. PAMELOR [Suspect]
     Indication: DIARRHOEA
     Dosage: UNK
  7. SANDOSTATIN LAR [Suspect]
     Dosage: 30 MG, EVERY 25 DAYS
     Dates: start: 20040101
  8. CODEINE PHOSPHATE INJ USP [Suspect]
     Indication: DIARRHOEA
     Dosage: UNK
  9. MYCOPHENOLATE MOFETIL (CELLCEPT) [Concomitant]
     Dosage: 500 MG, BID
  10. SANDOSTATIN [Suspect]
     Dosage: 25 MG, UNK

REACTIONS (3)
  - DIARRHOEA [None]
  - BLOOD GLUCOSE DECREASED [None]
  - RENAL FAILURE [None]
